FAERS Safety Report 5455176-4 (Version None)
Quarter: 2007Q3

REPORT INFORMATION
  Report Type: 
  Country: None (occurrence: None)
  Receive Date: 20070913
  Receipt Date: 20070913
  Transmission Date: 20080115
  Serious: No
  Sender: FDA-Public Use
  Company Number: None

PATIENT
  Age: 68 Year
  Sex: Male

DRUGS (2)
  1. METFORMIN HCL [Suspect]
     Dosage: 1000MG BID PO
     Route: 048
     Dates: start: 20041214, end: 20070816
  2. GLIPIZIDE [Suspect]
     Dosage: 20MG BID PO
     Route: 048
     Dates: start: 19991216

REACTIONS (1)
  - HYPOGLYCAEMIA [None]
